FAERS Safety Report 11073064 (Version 2)
Quarter: 2015Q3

REPORT INFORMATION
  Report Type: Spontaneous
  Country: BR (occurrence: BR)
  Receive Date: 20150428
  Receipt Date: 20150727
  Transmission Date: 20151125
  Serious: Yes (Hospitalization, Other)
  Sender: FDA-Public Use
  Company Number: BR-ASTRAZENECA-2015SE38079

PATIENT
  Age: 82 Year
  Sex: Female

DRUGS (10)
  1. BILETAN [Concomitant]
     Indication: HYPERTENSION
  2. DAFLON [Concomitant]
     Active Substance: DIOSMIN\HESPERIDIN
  3. NOLVADEX D [Suspect]
     Active Substance: TAMOXIFEN CITRATE
     Indication: BREAST CANCER
     Dosage: DAILY
     Route: 048
     Dates: start: 20150417, end: 20150611
  4. SYNTHROID [Concomitant]
     Active Substance: LEVOTHYROXINE SODIUM
     Indication: HYPOTHYROIDISM
     Route: 048
  5. OMEPRAZOLE. [Suspect]
     Active Substance: OMEPRAZOLE
     Indication: GASTRIC DISORDER
     Route: 048
  6. UNKNOWN [Concomitant]
     Active Substance: UNSPECIFIED INGREDIENT
     Indication: ANAEMIA
     Route: 048
  7. ZOMIG [Suspect]
     Active Substance: ZOLMITRIPTAN
     Indication: MIGRAINE
     Dosage: DAILY
     Route: 048
     Dates: start: 1994
  8. AROMASIN [Suspect]
     Active Substance: EXEMESTANE
     Indication: BREAST CANCER
     Route: 065
     Dates: start: 2015, end: 2015
  9. VITAMIN D [Concomitant]
     Active Substance: CHOLECALCIFEROL
     Dosage: ONCE A WEEK
  10. INDERAL [Suspect]
     Active Substance: PROPRANOLOL HYDROCHLORIDE
     Indication: ARRHYTHMIA
     Route: 048

REACTIONS (7)
  - Abdominal pain [Recovered/Resolved]
  - Migraine [Recovered/Resolved]
  - Tremor [Recovered/Resolved]
  - Constipation [Recovered/Resolved]
  - Fatigue [Not Recovered/Not Resolved]
  - Breast cancer recurrent [Not Recovered/Not Resolved]
  - Malaise [Not Recovered/Not Resolved]

NARRATIVE: CASE EVENT DATE: 2010
